FAERS Safety Report 22964649 (Version 4)
Quarter: 2024Q1

REPORT INFORMATION
  Report Type: Other
  Country: US (occurrence: None)
  Receive Date: 20230921
  Receipt Date: 20240228
  Transmission Date: 20240410
  Serious: Yes (Other)
  Sender: FDA-Public Use
  Company Number: US-ROCHE-3424716

PATIENT
  Age: 63 Year
  Sex: Male
  Weight: 83.99 kg

DRUGS (9)
  1. VABYSMO [Suspect]
     Active Substance: FARICIMAB\FARICIMAB-SVOA
     Indication: Type 2 diabetes mellitus
     Dosage: LAST DOSE OF VABYSMO WAS ON 13-SEP-2023
     Route: 050
     Dates: start: 20230503, end: 20230913
  2. VABYSMO [Suspect]
     Active Substance: FARICIMAB\FARICIMAB-SVOA
     Indication: Diabetic retinopathy
  3. VABYSMO [Suspect]
     Active Substance: FARICIMAB\FARICIMAB-SVOA
     Indication: Macular oedema
  4. AVASTIN [Suspect]
     Active Substance: BEVACIZUMAB
     Indication: Type 2 diabetes mellitus
     Route: 031
  5. AVASTIN [Suspect]
     Active Substance: BEVACIZUMAB
     Indication: Diabetic retinopathy
  6. AVASTIN [Suspect]
     Active Substance: BEVACIZUMAB
     Indication: Macular oedema
  7. EYLEA [Concomitant]
     Active Substance: AFLIBERCEPT
  8. LANTUS [Concomitant]
     Active Substance: INSULIN GLARGINE
  9. INSULIN NOS [Concomitant]
     Active Substance: INSULIN NOS

REACTIONS (10)
  - Cataract [Recovering/Resolving]
  - Retinitis [Unknown]
  - Neuropathy peripheral [Unknown]
  - Nephropathy [Unknown]
  - Asthenia [Unknown]
  - Disease progression [Unknown]
  - Off label use [Unknown]
  - Blindness [Unknown]
  - Drug ineffective [Unknown]
  - Visual impairment [Unknown]

NARRATIVE: CASE EVENT DATE: 20230503
